FAERS Safety Report 8546105-5 (Version None)
Quarter: 2012Q3

REPORT INFORMATION
  Report Type: 
  Country: None (occurrence: None)
  Receive Date: 20120727
  Receipt Date: 20111209
  Transmission Date: 20120928
  Serious: No
  Sender: FDA-Public Use
  Company Number: US-ASTRAZENECA-2011SE74610

PATIENT
  Age: 86 Year
  Sex: Female
  Weight: 68 kg

DRUGS (7)
  1. GENERIC OF ARICEPT [Concomitant]
  2. SEROQUEL [Suspect]
     Indication: DEMENTIA ALZHEIMER'S TYPE
     Dosage: 1 TABLET IN THE MORNING AND 1 TABLET IN THE EVENING
     Route: 048
  3. ENABLEX [Concomitant]
  4. SEROQUEL [Suspect]
     Dosage: 3 TABLETS IN THE MORNING AND 4 TABLETS IN THE EVENING
     Route: 048
     Dates: start: 20100101
  5. METOPROLOL TARTRATE [Concomitant]
  6. SEROQUEL [Suspect]
     Dosage: 2 TABLETS IN THE MORNING AND 2 TABLETS IN THE EVENING
     Route: 048
  7. CRANBERRY CONCENTRATE [Concomitant]

REACTIONS (6)
  - OFF LABEL USE [None]
  - AGGRESSION [None]
  - FEELING ABNORMAL [None]
  - RENAL DISORDER [None]
  - DRUG DOSE OMISSION [None]
  - ANGER [None]
